FAERS Safety Report 25928979 (Version 1)
Quarter: 2025Q4

REPORT INFORMATION
  Report Type: Spontaneous
  Country: EU (occurrence: EU)
  Receive Date: 20251016
  Receipt Date: 20251016
  Transmission Date: 20260118
  Serious: Yes (Hospitalization)
  Sender: RANBAXY
  Company Number: EU-AFSSAPS-TO2025000746

PATIENT
  Age: 48 Year
  Sex: Female
  Weight: 76 kg

DRUGS (9)
  1. METFORMIN [Suspect]
     Active Substance: METFORMIN HYDROCHLORIDE
     Indication: Type 2 diabetes mellitus
     Dosage: 1 GRAM, DAILY, 500MG TWICE DAILY
     Route: 048
     Dates: start: 20250307
  2. ESIDREX [Suspect]
     Active Substance: HYDROCHLOROTHIAZIDE
     Indication: Hypertension
     Dosage: 25 MILLIGRAM, DAILY, LC
     Route: 048
  3. LYRICA [Suspect]
     Active Substance: PREGABALIN
     Indication: Pain
     Dosage: 300 MILLIGRAM, DAILY, LC100MG X3/DAY
     Route: 048
  4. METHOTREXATE SODIUM [Suspect]
     Active Substance: METHOTREXATE SODIUM
     Indication: Myositis
     Dosage: 15 MILLIGRAM, 1/WEEK
     Route: 058
     Dates: start: 20240707, end: 20250501
  5. AMLODIPINE\VALSARTAN [Suspect]
     Active Substance: AMLODIPINE\VALSARTAN
     Indication: Hypertension
     Dosage: 1 DOSAGE FORM, DAILY, LC
     Route: 048
  6. SKENAN [Suspect]
     Active Substance: MORPHINE SULFATE
     Indication: Pain
     Dosage: 200 MILLIGRAM, DAILY, LC100MG TWICE DAILY
     Route: 048
  7. SKENAN [Suspect]
     Active Substance: MORPHINE SULFATE
     Dosage: 60 MILLIGRAM, LC30MG TWICE DAILY
     Route: 048
  8. MORPHINE SULFATE [Suspect]
     Active Substance: MORPHINE SULFATE
     Indication: Pain
     Dosage: 40 MILLIGRAM, 1DOSE/ASNECESSA, LC20MG 2X /JR
     Route: 048
  9. HYDROCORTISONE [Suspect]
     Active Substance: HYDROCORTISONE
     Indication: Myositis
     Dosage: 10 MILLIGRAM, DAILY
     Route: 048
     Dates: start: 20250123, end: 20250301

REACTIONS (2)
  - Pancreatitis acute [Recovering/Resolving]
  - Adrenal insufficiency [Recovered/Resolved]

NARRATIVE: CASE EVENT DATE: 20250501
